FAERS Safety Report 11965797 (Version 2)
Quarter: 2016Q1

REPORT INFORMATION
  Report Type: Spontaneous
  Country: JP (occurrence: JP)
  Receive Date: 20160127
  Receipt Date: 20160307
  Transmission Date: 20160526
  Serious: Yes (Other)
  Sender: FDA-Public Use
  Company Number: JP-SUN PHARMACEUTICAL INDUSTRIES LTD-2016RR-110342

PATIENT

DRUGS (4)
  1. CILOSTAZOL. [Suspect]
     Active Substance: CILOSTAZOL
     Indication: PROPHYLAXIS
     Dosage: 100 MG, DAILY
     Route: 065
  2. FASUDIL HYDROCHLORIDE [Suspect]
     Active Substance: FASUDIL HYDROCHLORIDE
     Indication: PROPHYLAXIS
     Dosage: 30 MG, TID
     Route: 042
  3. CILOSTAZOL. [Suspect]
     Active Substance: CILOSTAZOL
     Indication: PROPHYLAXIS
     Dosage: 200 MG, DAILY
     Route: 065
  4. SODIUM OZAGREL [Suspect]
     Active Substance: OZAGREL SODIUM
     Indication: PROPHYLAXIS
     Dosage: 80 MG, DAILY, CONTINUOUS INFUSION
     Route: 065

REACTIONS (1)
  - Cerebral haematoma [Unknown]
